FAERS Safety Report 8583043-6 (Version None)
Quarter: 2012Q3

REPORT INFORMATION
  Report Type: 
  Country: None (occurrence: None)
  Receive Date: 20120727
  Receipt Date: 20120716
  Transmission Date: 20120928
  Serious: Yes (Death, Other)
  Sender: FDA-Public Use
  Company Number: 011724

PATIENT
  Age: 54 Year
  Sex: Male

DRUGS (3)
  1. CAMPATH USA (ALEMITUZUMAB) [Concomitant]
  2. BUSULFEX [Suspect]
     Dosage: 3.2 MG/KG, DAILY DOSE, INTRAVENOUS
     Route: 042
  3. FLUDARABINE PHOSPHATE [Concomitant]

REACTIONS (1)
  - ACUTE GRAFT VERSUS HOST DISEASE [None]
